FAERS Safety Report 22943838 (Version 3)
Quarter: 2025Q1

REPORT INFORMATION
  Report Type: Spontaneous
  Country: IN (occurrence: IN)
  Receive Date: 20230914
  Receipt Date: 20250325
  Transmission Date: 20250408
  Serious: Yes (Other)
  Sender: PFIZER
  Company Number: IN-PFIZER INC-PV202300154087

PATIENT
  Age: 61 Year
  Sex: Male

DRUGS (1)
  1. LORLATINIB [Suspect]
     Active Substance: LORLATINIB
     Indication: Lung carcinoma cell type unspecified stage IV
     Route: 048

REACTIONS (4)
  - Pulmonary embolism [Unknown]
  - Lung carcinoma cell type unspecified stage IV [Unknown]
  - Malignant neoplasm progression [Unknown]
  - Metastases to bone [Unknown]
